FAERS Safety Report 6739835-9 (Version None)
Quarter: 2010Q2

REPORT INFORMATION
  Report Type: 
  Country: None (occurrence: None)
  Receive Date: 20100525
  Receipt Date: 20100513
  Transmission Date: 20101027
  Serious: Yes (Hospitalization)
  Sender: FDA-Public Use
  Company Number: PHHY2010US31431

PATIENT
  Sex: Male
  Weight: 61.678 kg

DRUGS (1)
  1. EXJADE [Suspect]
     Dosage: 1000 MG DAILY
     Route: 048
     Dates: start: 20090408, end: 20100324

REACTIONS (1)
  - CHOLECYSTITIS [None]
